FAERS Safety Report 7758495-1 (Version None)
Quarter: 2011Q3

REPORT INFORMATION
  Report Type: 
  Country: None (occurrence: None)
  Receive Date: 20110914
  Receipt Date: 20110830
  Transmission Date: 20111222
  Serious: Yes (Death, Hospitalization, Other)
  Sender: FDA-Public Use
  Company Number: 2011MA012743

PATIENT
  Age: 75 Year
  Sex: Female
  Weight: 44.4525 kg

DRUGS (8)
  1. DILTIAZEM HCL [Concomitant]
  2. SIMVASTATIN [Concomitant]
  3. ASPIRIN [Concomitant]
  4. DIGOXIN [Suspect]
     Indication: ATRIAL FIBRILLATION
     Dosage: 125 MG;QD;;PO
     Route: 048
     Dates: start: 20070101, end: 20080101
  5. LASIX [Concomitant]
  6. LORATADINE [Concomitant]
  7. DIOVAN [Concomitant]
  8. POTASSIUM CHLORIDE [Concomitant]

REACTIONS (45)
  - ECONOMIC PROBLEM [None]
  - BENIGN NEOPLASM [None]
  - OESOPHAGEAL HYPOMOTILITY [None]
  - RENAL IMPAIRMENT [None]
  - CARDIAC MYXOMA [None]
  - TEARFULNESS [None]
  - ANXIETY [None]
  - TOXICITY TO VARIOUS AGENTS [None]
  - PALPITATIONS [None]
  - DECREASED APPETITE [None]
  - MITRAL VALVE INCOMPETENCE [None]
  - UNEVALUABLE EVENT [None]
  - ACTIVITIES OF DAILY LIVING IMPAIRED [None]
  - CARDIOACTIVE DRUG LEVEL INCREASED [None]
  - DYSPHAGIA [None]
  - HEART RATE IRREGULAR [None]
  - VOMITING [None]
  - INJURY [None]
  - PAIN [None]
  - EMOTIONAL DISORDER [None]
  - SOCIAL AVOIDANT BEHAVIOUR [None]
  - FATIGUE [None]
  - HEART RATE DECREASED [None]
  - ELECTROLYTE IMBALANCE [None]
  - ATRIOVENTRICULAR BLOCK [None]
  - AZOTAEMIA [None]
  - HYPERLIPIDAEMIA [None]
  - BLOOD ALKALINE PHOSPHATASE INCREASED [None]
  - MITRAL VALVE DISEASE [None]
  - RENAL FAILURE [None]
  - PULMONARY HYPERTENSION [None]
  - HYPOKALAEMIA [None]
  - CARDIAC FAILURE CONGESTIVE [None]
  - AORTIC VALVE INCOMPETENCE [None]
  - IMPAIRED WORK ABILITY [None]
  - ANHEDONIA [None]
  - DYSGEUSIA [None]
  - OEDEMA PERIPHERAL [None]
  - GENERAL PHYSICAL HEALTH DETERIORATION [None]
  - NAUSEA [None]
  - WEIGHT DECREASED [None]
  - ATRIAL FIBRILLATION [None]
  - TACHYCARDIA [None]
  - RENAL CYST [None]
  - ATRIAL FLUTTER [None]
